FAERS Safety Report 24128567 (Version 1)
Quarter: 2024Q3

REPORT INFORMATION
  Report Type: Spontaneous
  Country: US (occurrence: None)
  Receive Date: 20240722
  Receipt Date: 20240722
  Transmission Date: 20241017
  Serious: Yes (Other)
  Sender: Public
  Company Number: None

PATIENT
  Age: 62 Year
  Sex: Female
  Weight: 95.4 kg

DRUGS (8)
  1. ESTRADIOL [Suspect]
     Active Substance: ESTRADIOL
     Indication: Atrophic vulvovaginitis
     Dosage: 1 GRAM 3XWEEK  VAGINAL?
     Route: 067
     Dates: start: 20240616, end: 20240701
  2. TELMISARTAN [Concomitant]
     Active Substance: TELMISARTAN
  3. ZETIA [Concomitant]
     Active Substance: EZETIMIBE
  4. CRESTOR [Concomitant]
     Active Substance: ROSUVASTATIN CALCIUM
  5. VITAMIN D3 [Concomitant]
     Active Substance: CHOLECALCIFEROL
  6. GARLIQUE [Concomitant]
     Active Substance: GARLIC
  7. MAGNESIUM OXIDE [Concomitant]
     Active Substance: MAGNESIUM OXIDE
  8. DOCUSATE SODIUM [Concomitant]
     Active Substance: DOCUSATE SODIUM

REACTIONS (2)
  - Thrombophlebitis [None]
  - Superficial vein thrombosis [None]

NARRATIVE: CASE EVENT DATE: 20240717
